FAERS Safety Report 11835520 (Version 1)
Quarter: 2015Q4

REPORT INFORMATION
  Report Type: Spontaneous
  Country: US (occurrence: None)
  Receive Date: 20151214
  Receipt Date: 20151214
  Transmission Date: 20160305
  Serious: Yes (Life-Threatening, Hospitalization, Disabling, Other)
  Sender: FDA-Public Use
  Company Number: None

PATIENT
  Age: 45 Year
  Sex: Female
  Weight: 68.04 kg

DRUGS (26)
  1. FOSAMAX [Concomitant]
     Active Substance: ALENDRONATE SODIUM
  2. PHENERGAN [Concomitant]
     Active Substance: PROMETHAZINE HYDROCHLORIDE
  3. WALKER DEVICE [Concomitant]
  4. NUVIGIL [Concomitant]
     Active Substance: ARMODAFINIL
  5. SULFAZALAZINE [Concomitant]
  6. ZOFRAN [Concomitant]
     Active Substance: ONDANSETRON HYDROCHLORIDE
  7. VITAMIN B12 [Concomitant]
     Active Substance: CYANOCOBALAMIN
  8. METHOTREXATE [Concomitant]
     Active Substance: METHOTREXATE
  9. COPAXONE [Suspect]
     Active Substance: GLATIRAMER ACETATE
     Indication: ABDOMINAL INFECTION
     Dosage: 30 DAY, 20 MG., GIVEN INTO/UNDER THE SKIN
  10. WHEELCHAIR [Concomitant]
     Active Substance: DEVICE
  11. CARAFATE [Concomitant]
     Active Substance: SUCRALFATE
  12. CLONOPIN [Concomitant]
     Active Substance: CLONAZEPAM
  13. FOLIC ACID. [Concomitant]
     Active Substance: FOLIC ACID
  14. AMITIZA [Concomitant]
     Active Substance: LUBIPROSTONE
  15. NUDEXTA [Concomitant]
  16. NEURONTIN [Concomitant]
     Active Substance: GABAPENTIN
  17. VITAMIN D2 [Concomitant]
     Active Substance: ERGOCALCIFEROL
  18. DULCULAX [Concomitant]
  19. IMETREX [Concomitant]
  20. FLONASE [Concomitant]
     Active Substance: FLUTICASONE PROPIONATE
  21. NOSTRILSPRAY [Concomitant]
  22. MULTI VITIMAN [Concomitant]
  23. PROVERA [Concomitant]
     Active Substance: MEDROXYPROGESTERONE ACETATE
  24. PERCOCET [Concomitant]
     Active Substance: ACETAMINOPHEN\OXYCODONE HYDROCHLORIDE
  25. NEXIAM [Concomitant]
     Active Substance: ESOMEPRAZOLE
  26. FENTYNAL DURAGESIC [Concomitant]

REACTIONS (9)
  - Necrosis [None]
  - Fatigue [None]
  - Impaired work ability [None]
  - Injection site swelling [None]
  - Injection site abscess [None]
  - Pyrexia [None]
  - Injection site warmth [None]
  - Inflammation [None]
  - Product contamination [None]
